FAERS Safety Report 9970157 (Version 1)
Quarter: 2014Q1

REPORT INFORMATION
  Report Type: Spontaneous
  Country: US (occurrence: US)
  Receive Date: 20140306
  Receipt Date: 20140306
  Transmission Date: 20141002
  Serious: Yes (Hospitalization)
  Sender: FDA-Public Use
  Company Number: US-OTSUKA-US-2014-10396

PATIENT
  Sex: 0

DRUGS (17)
  1. ABILIFY MAINTENA [Suspect]
     Indication: SCHIZOPHRENIA
     Dosage: 300 MG MILLIGRAM(S), SINGLE
     Route: 030
     Dates: start: 20131210, end: 20131214
  2. ABILIFY [Concomitant]
     Indication: SCHIZOPHRENIA
     Dosage: 5 MG MILLIGRAM(S), QD
     Route: 048
     Dates: start: 20131022, end: 20140107
  3. ABILIFY [Concomitant]
     Dosage: 10 MG MILLIGRAM(S), QD
     Route: 048
     Dates: start: 20140107
  4. BACTRIM [Concomitant]
     Indication: PRODUCT USED FOR UNKNOWN INDICATION
     Dosage: UNK
  5. VITAMIN D3 [Concomitant]
     Indication: PRODUCT USED FOR UNKNOWN INDICATION
     Dosage: 1000 DF DOSAGE FORM, SINGLE
     Route: 048
     Dates: start: 20130719
  6. FLUTICASONE [Concomitant]
     Indication: PRODUCT USED FOR UNKNOWN INDICATION
     Dosage: 50 MCG, SINGLE
     Route: 045
     Dates: start: 20130529
  7. LORATADINE [Concomitant]
     Indication: PRODUCT USED FOR UNKNOWN INDICATION
     Dosage: 10 MG MILLIGRAM(S), SINGLE
     Route: 048
     Dates: start: 20130923
  8. PAROXETINE [Concomitant]
     Indication: PRODUCT USED FOR UNKNOWN INDICATION
     Dosage: 20 MG MILLIGRAM(S), QAM
     Route: 048
     Dates: start: 20130820
  9. PAROXETINE [Concomitant]
     Dosage: 40 MG MILLIGRAM(S), HS
     Route: 048
     Dates: start: 20131008
  10. DIVALPROEX [Concomitant]
     Indication: PRODUCT USED FOR UNKNOWN INDICATION
     Dosage: 500 MG MILLIGRAM(S), BID
     Route: 048
     Dates: start: 20130529
  11. DIVALPROEX [Concomitant]
     Dosage: 1000 MG MILLIGRAM(S), HS
     Dates: start: 20130529
  12. PROPRANOLOL [Concomitant]
     Indication: PRODUCT USED FOR UNKNOWN INDICATION
     Dosage: 20 MG MILLIGRAM(S), BID
     Route: 048
     Dates: start: 20130529
  13. OLANZAPINE [Concomitant]
     Indication: PRODUCT USED FOR UNKNOWN INDICATION
     Dosage: 10 MG MILLIGRAM(S), HS
     Route: 048
     Dates: start: 20131001
  14. OLANZAPINE [Concomitant]
     Dosage: 20 MG MILLIGRAM(S), HS
     Route: 048
     Dates: start: 20131001
  15. CHLORPROMAZINE [Concomitant]
     Indication: AGITATION
     Dosage: 25 MG/ML, Q6HR
     Dates: start: 20131001
  16. CHLORPROMAZINE [Concomitant]
     Dosage: 100 MG MILLIGRAM(S), Q6HR
     Dates: start: 20131001
  17. RANITIDINE [Concomitant]
     Dosage: 150 MG MILLIGRAM(S), BID
     Dates: start: 20131120

REACTIONS (7)
  - Pleural effusion [Unknown]
  - Pneumonia [Unknown]
  - Atelectasis [Unknown]
  - Tachycardia [Unknown]
  - Hypoxia [Unknown]
  - Pyrexia [Unknown]
  - Schizophrenia [Unknown]
